FAERS Safety Report 5937952-4 (Version None)
Quarter: 2008Q4

REPORT INFORMATION
  Report Type: 
  Country: None (occurrence: None)
  Receive Date: 20081031
  Receipt Date: 20081021
  Transmission Date: 20090506
  Serious: Yes (Other)
  Sender: FDA-Public Use
  Company Number: US-PFIZER INC-2008059437

PATIENT
  Sex: Female
  Weight: 61.2 kg

DRUGS (1)
  1. DILANTIN [Suspect]
     Indication: EPILEPSY
     Route: 048
     Dates: start: 20070915

REACTIONS (14)
  - ANXIETY [None]
  - AURA [None]
  - BITE [None]
  - CONVULSION [None]
  - DIPLOPIA [None]
  - DISTURBANCE IN ATTENTION [None]
  - DIZZINESS [None]
  - DYSKINESIA [None]
  - EMOTIONAL DISORDER [None]
  - FATIGUE [None]
  - FEELING ABNORMAL [None]
  - MALAISE [None]
  - MEMORY IMPAIRMENT [None]
  - NAUSEA [None]
